FAERS Safety Report 13966606 (Version 4)
Quarter: 2025Q2

REPORT INFORMATION
  Report Type: Spontaneous
  Country: US (occurrence: US)
  Receive Date: 20170914
  Receipt Date: 20250619
  Transmission Date: 20250717
  Serious: Yes (Life-Threatening, Hospitalization, Other)
  Sender: AUROBINDO
  Company Number: None

PATIENT
  Age: 74 Year
  Sex: Female

DRUGS (3)
  1. BUPIVACAINE HYDROCHLORIDE [Suspect]
     Active Substance: BUPIVACAINE HYDROCHLORIDE
     Indication: Pain
     Route: 037
  2. BUPIVACAINE HYDROCHLORIDE [Suspect]
     Active Substance: BUPIVACAINE HYDROCHLORIDE
     Route: 037
  3. KADIAN [Suspect]
     Active Substance: MORPHINE SULFATE
     Indication: Pain
     Route: 037

REACTIONS (5)
  - Neurogenic shock [Unknown]
  - Peripheral sensorimotor neuropathy [Recovering/Resolving]
  - Status epilepticus [Recovered/Resolved]
  - Toxicity to various agents [Unknown]
  - Device malfunction [Unknown]
